FAERS Safety Report 6125105-9 (Version None)
Quarter: 2009Q1

REPORT INFORMATION
  Report Type: 
  Country: None (occurrence: None)
  Receive Date: 20090318
  Receipt Date: 20090309
  Transmission Date: 20090719
  Serious: Yes (Hospitalization)
  Sender: FDA-Public Use
  Company Number: MEDI-0008059

PATIENT
  Age: 4 Month
  Sex: Female

DRUGS (7)
  1. SYNAGIS [Suspect]
     Indication: RESPIRATORY SYNCYTIAL VIRUS INFECTION
     Dosage: INTRAMUSCULAR ; INTRAMUSCULAR ; INTRAMUSCULAR ; INTRAMUSCULAR
     Route: 030
     Dates: start: 20081204, end: 20090306
  2. SYNAGIS [Suspect]
     Indication: RESPIRATORY SYNCYTIAL VIRUS INFECTION
     Dosage: INTRAMUSCULAR ; INTRAMUSCULAR ; INTRAMUSCULAR ; INTRAMUSCULAR
     Route: 030
     Dates: start: 20081204
  3. SYNAGIS [Suspect]
     Indication: RESPIRATORY SYNCYTIAL VIRUS INFECTION
     Dosage: INTRAMUSCULAR ; INTRAMUSCULAR ; INTRAMUSCULAR ; INTRAMUSCULAR
     Route: 030
     Dates: start: 20081231
  4. SYNAGIS [Suspect]
     Indication: RESPIRATORY SYNCYTIAL VIRUS INFECTION
     Dosage: INTRAMUSCULAR ; INTRAMUSCULAR ; INTRAMUSCULAR ; INTRAMUSCULAR
     Route: 030
     Dates: start: 20090204
  5. DIGOXIN [Concomitant]
  6. LASIX [Concomitant]
  7. OXYGEN (OXYGEN) [Concomitant]

REACTIONS (4)
  - LYMPHADENOPATHY [None]
  - OEDEMA GENITAL [None]
  - PYREXIA [None]
  - TACHYCARDIA [None]
